FAERS Safety Report 5663796-7 (Version None)
Quarter: 2008Q1

REPORT INFORMATION
  Report Type: 
  Country: None (occurrence: None)
  Receive Date: 20080314
  Receipt Date: 20080303
  Transmission Date: 20080703
  Serious: Yes (Other)
  Sender: FDA-Public Use
  Company Number: GB-RANBAXY-2008RR-13448

PATIENT

DRUGS (5)
  1. SIMVASTATIN [Suspect]
     Indication: HYPERCHOLESTEROLAEMIA
     Dosage: UNK
     Route: 048
     Dates: start: 20080221, end: 20080222
  2. AMOXICILLIN [Concomitant]
     Indication: LOWER RESPIRATORY TRACT INFECTION
     Dosage: 500 MG, UNK
     Route: 048
     Dates: start: 20080102, end: 20080109
  3. DEPO-PROVERA [Concomitant]
     Indication: CONTRACEPTION
     Dosage: UNK
     Route: 030
     Dates: start: 20080131
  4. TEMAZEPAM [Concomitant]
     Dosage: 20 MG, UNK
     Route: 048
     Dates: start: 20080115
  5. ZOPICLONE [Concomitant]
     Indication: INSOMNIA
     Dosage: 1 DF, QD
     Route: 048
     Dates: start: 20071219

REACTIONS (5)
  - DIZZINESS [None]
  - HYPERHIDROSIS [None]
  - TACHYCARDIA [None]
  - THROAT TIGHTNESS [None]
  - VOMITING [None]
